FAERS Safety Report 12937389 (Version 1)
Quarter: 2016Q4

REPORT INFORMATION
  Report Type: Spontaneous
  Country: US (occurrence: US)
  Receive Date: 20161114
  Receipt Date: 20161114
  Transmission Date: 20170207
  Serious: No
  Sender: FDA-Public Use
  Company Number: US-GALDERMA-US16005171

PATIENT
  Age: 79 Year
  Sex: Female

DRUGS (3)
  1. CLOBEX [Suspect]
     Active Substance: CLOBETASOL PROPIONATE
     Indication: PSORIASIS
     Dosage: 0.05%
     Route: 061
  2. CLOBETASOL 0.05 CREAM [Concomitant]
     Indication: PSORIASIS
     Dosage: 0.05%
     Route: 061
  3. CLOBETASOL PROPIONATE (CLOBETASOL PROPIONATE) LOTION [Concomitant]
     Indication: PSORIASIS
     Dosage: 0.05%

REACTIONS (2)
  - Expired product administered [Recovered/Resolved]
  - Drug ineffective [Unknown]
